FAERS Safety Report 13507948 (Version 1)
Quarter: 2017Q2

REPORT INFORMATION
  Report Type: Spontaneous
  Country: US (occurrence: US)
  Receive Date: 20170503
  Receipt Date: 20170503
  Transmission Date: 20170830
  Serious: No
  Sender: FDA-Public Use
  Company Number: US-PFIZER INC-2017190625

PATIENT
  Age: 90 Year
  Sex: Female

DRUGS (1)
  1. EFFEXOR XR [Suspect]
     Active Substance: VENLAFAXINE HYDROCHLORIDE
     Dosage: 18.75 MG, 1X/DAY

REACTIONS (6)
  - Back pain [Unknown]
  - Hypertension [Recovered/Resolved]
  - Nausea [Unknown]
  - Intentional product misuse [Unknown]
  - Malaise [Unknown]
  - Abdominal distension [Unknown]
